FAERS Safety Report 18386958 (Version 2)
Quarter: 2020Q4

REPORT INFORMATION
  Report Type: Spontaneous
  Country: US (occurrence: US)
  Receive Date: 20201015
  Receipt Date: 20201110
  Transmission Date: 20210114
  Serious: Yes (Hospitalization, Other)
  Sender: FDA-Public Use
  Company Number: NVSC2020US273921

PATIENT
  Age: 64 Year
  Sex: Female
  Weight: 63.2 kg

DRUGS (13)
  1. GABAPENTIN. [Concomitant]
     Active Substance: GABAPENTIN
     Indication: FACIAL PAIN
     Dosage: 600 MG QAM, 900 MG QPM PO DAILY,
     Route: 048
     Dates: start: 201911
  2. AMITRIPTYLINE [Concomitant]
     Active Substance: AMITRIPTYLINE
     Indication: FACIAL PAIN
     Dosage: 25 MG - 50 MG PO PRN AT BEDTIME
     Route: 048
     Dates: start: 202003
  3. OXYCODONE [Concomitant]
     Active Substance: OXYCODONE
     Indication: BREAKTHROUGH PAIN
     Dosage: 5 MG, Q8H PRN
     Route: 048
     Dates: start: 202003
  4. EVEROLIMUS. [Suspect]
     Active Substance: EVEROLIMUS
     Indication: GLIOSARCOMA
     Dosage: 5 MG, QD
     Route: 048
     Dates: start: 20200827, end: 20200923
  5. LEXAPRO [Concomitant]
     Active Substance: ESCITALOPRAM OXALATE
     Indication: DEPRESSION
     Dosage: 10 MG, QD
     Route: 048
     Dates: start: 201808
  6. LISINOPRIL. [Concomitant]
     Active Substance: LISINOPRIL
     Indication: HYPERTENSION
     Dosage: 10 MG, QD
     Route: 048
     Dates: start: 201908
  7. ACETAMINOPHEN. [Concomitant]
     Active Substance: ACETAMINOPHEN
     Indication: PAIN
     Dosage: 1000 MG, QD
     Route: 048
     Dates: start: 201911
  8. OXCARBAZEPINE. [Suspect]
     Active Substance: OXCARBAZEPINE
     Indication: FACIAL PAIN
     Dosage: 300 MG, BID
     Route: 048
     Dates: start: 20200930
  9. LEXAPRO [Concomitant]
     Active Substance: ESCITALOPRAM OXALATE
     Indication: ANXIETY
  10. ALPRAZOLAM. [Concomitant]
     Active Substance: ALPRAZOLAM
     Indication: ANXIETY
     Dosage: 0.25 MG, TID PRN
     Route: 048
     Dates: start: 202001
  11. KEPPRA [Concomitant]
     Active Substance: LEVETIRACETAM
     Indication: SEIZURE PROPHYLAXIS
     Dosage: 500 MG, BID
     Route: 048
     Dates: start: 201911
  12. DEXAMETHASONE. [Concomitant]
     Active Substance: DEXAMETHASONE
     Indication: HEADACHE
     Dosage: 4 MG QAM, 2 MG QPM PO
     Route: 065
     Dates: start: 20200731
  13. SORAFENIB [Suspect]
     Active Substance: SORAFENIB
     Indication: GLIOSARCOMA
     Dosage: 400 MG, BID (7 DAYS ON, 7D OFF)
     Route: 048
     Dates: start: 20200827, end: 20200916

REACTIONS (9)
  - Malignant neoplasm progression [Recovering/Resolving]
  - Monoplegia [Recovering/Resolving]
  - Mental status changes [Unknown]
  - Gliosarcoma [Recovering/Resolving]
  - Vomiting [Unknown]
  - Nausea [Unknown]
  - Dehydration [Unknown]
  - Brain oedema [Unknown]
  - Product use in unapproved indication [Unknown]

NARRATIVE: CASE EVENT DATE: 20201001
